FAERS Safety Report 19047948 (Version 2)
Quarter: 2025Q2

REPORT INFORMATION
  Report Type: Spontaneous
  Country: DE (occurrence: DE)
  Receive Date: 20210324
  Receipt Date: 20250627
  Transmission Date: 20250716
  Serious: Yes (Hospitalization, Other)
  Sender: AUROBINDO
  Company Number: DE-NAPPMUNDI-GBR-2021-0084048

PATIENT
  Age: 75 Year
  Sex: Male

DRUGS (2)
  1. PIPERACILLIN AND TAZOBACTAM [Suspect]
     Active Substance: PIPERACILLIN SODIUM\TAZOBACTAM SODIUM
     Indication: Pneumonia aspiration
     Route: 065
  2. POVIDONE-IODINE [Suspect]
     Active Substance: POVIDONE-IODINE
     Indication: Infection prophylaxis
     Route: 003

REACTIONS (6)
  - Cardiac pacemaker replacement [Recovered/Resolved]
  - Endocarditis bacterial [Recovered/Resolved]
  - Clostridium difficile infection [Recovered/Resolved]
  - Cardiac pacemaker removal [Recovered/Resolved]
  - Device related infection [Recovered/Resolved]
  - Drug ineffective [Unknown]
